FAERS Safety Report 6667404-8 (Version None)
Quarter: 2010Q2

REPORT INFORMATION
  Report Type: 
  Country: None (occurrence: None)
  Receive Date: 20100405
  Receipt Date: 20100331
  Transmission Date: 20101027
  Serious: Yes (Death, Hospitalization, Other)
  Sender: FDA-Public Use
  Company Number: PHEH2010US01370

PATIENT
  Sex: Male

DRUGS (20)
  1. DIOVAN HCT [Suspect]
     Dosage: 320/25 MG, UNK
  2. DIOVAN [Suspect]
     Dosage: UNK
     Dates: start: 20090715
  3. PLAVIX [Concomitant]
  4. SIMVASTATIN [Concomitant]
  5. LASIX [Concomitant]
  6. DIGOXIN [Concomitant]
  7. CLINDAMYCIN [Concomitant]
  8. DARVOCET-N 100 [Concomitant]
  9. COUMADIN [Concomitant]
  10. PACERONE [Concomitant]
  11. TOPROL-XL [Concomitant]
  12. LISINOPRIL [Concomitant]
  13. NORVASC [Concomitant]
  14. ASPIRIN [Concomitant]
  15. AMIODARONE HCL [Concomitant]
  16. INSULIN [Concomitant]
  17. PROTONIX [Concomitant]
  18. ZOFRAN [Concomitant]
  19. LABETALOL HCL [Concomitant]
  20. FLUID/ELECTROLYTE REPLACEMENT THERAPY [Concomitant]
     Route: 042

REACTIONS (8)
  - APHASIA [None]
  - CELLULITIS [None]
  - CEREBRAL ARTERY OCCLUSION [None]
  - CEREBRAL INFARCTION [None]
  - CEREBROVASCULAR ACCIDENT [None]
  - COMA SCALE ABNORMAL [None]
  - FACIAL PALSY [None]
  - HEMIPLEGIA [None]
